FAERS Safety Report 9218312 (Version 1)
Quarter: 2013Q2

REPORT INFORMATION
  Report Type: Spontaneous
  Country: US (occurrence: US)
  Receive Date: 20130409
  Receipt Date: 20130409
  Transmission Date: 20140414
  Serious: No
  Sender: FDA-Public Use
  Company Number: US-009507513-1304USA003135

PATIENT
  Age: 30 Year
  Sex: Male

DRUGS (6)
  1. SAPHRIS [Suspect]
     Dosage: 5 MG, DAILY
     Dates: start: 20130403
  2. ABILIFY [Concomitant]
     Dosage: UNK
  3. AMITRIPTYLINE HYDROCHLORIDE [Concomitant]
  4. LAMICTAL [Concomitant]
  5. PROZAC [Concomitant]
  6. CYPROHEPTADINE HYDROCHLORIDE [Concomitant]

REACTIONS (3)
  - Restless legs syndrome [Unknown]
  - Drug dose omission [Unknown]
  - Dysphagia [Unknown]
